FAERS Safety Report 6590315-3 (Version None)
Quarter: 2010Q1

REPORT INFORMATION
  Report Type: 
  Country: None (occurrence: None)
  Receive Date: 20100219
  Receipt Date: 20100212
  Transmission Date: 20100710
  Serious: Yes (Death)
  Sender: FDA-Public Use
  Company Number: US-SANOFI-AVENTIS-2010SA008441

PATIENT

DRUGS (3)
  1. MULTAQ [Suspect]
     Route: 048
  2. BETA BLOCKING AGENTS [Concomitant]
  3. CALCIUM CHANNEL BLOCKERS [Concomitant]

REACTIONS (1)
  - VENTRICULAR FIBRILLATION [None]
